FAERS Safety Report 5971274-0 (Version None)
Quarter: 2008Q4

REPORT INFORMATION
  Report Type: 
  Country: None (occurrence: None)
  Receive Date: 20081128
  Receipt Date: 20081124
  Transmission Date: 20090506
  Serious: Yes (Death, Hospitalization, Other)
  Sender: FDA-Public Use
  Company Number: PT-PFIZER INC-2008087228

PATIENT
  Sex: Male
  Weight: 80 kg

DRUGS (4)
  1. ZARATOR [Suspect]
     Dosage: DAILY DOSE:10MG
     Route: 048
     Dates: start: 20010301
  2. FLINDIX [Suspect]
     Dosage: FREQ:FREQUENCY: SOS
     Route: 048
     Dates: start: 20010301
  3. IMDUR [Suspect]
     Dates: start: 20010301, end: 20060101
  4. BISOPROLOL FUMARATE [Suspect]
     Dates: start: 20010301, end: 20060101

REACTIONS (2)
  - AMYOTROPHIC LATERAL SCLEROSIS [None]
  - MULTI-ORGAN FAILURE [None]
